FAERS Safety Report 6288483-6 (Version None)
Quarter: 2009Q3

REPORT INFORMATION
  Report Type: 
  Country: None (occurrence: None)
  Receive Date: 20090729
  Receipt Date: 20090720
  Transmission Date: 20100115
  Serious: Yes (Hospitalization)
  Sender: FDA-Public Use
  Company Number: US-MYLANLABS-2009S1010233

PATIENT
  Age: 13 Year
  Sex: Male
  Weight: 39.46 kg

DRUGS (6)
  1. DIVALPROEX SODIUM EXTENDED RELEASE [Suspect]
     Route: 048
  2. DDAVP [Concomitant]
     Route: 048
  3. QUETIAPINE FUMARATE [Concomitant]
  4. CLONIDINE [Concomitant]
  5. ARIPIPRAZOLE [Concomitant]
  6. MIRALAX [Concomitant]

REACTIONS (1)
  - ANTICONVULSANT DRUG LEVEL BELOW THERAPEUTIC [None]
